FAERS Safety Report 15151777 (Version 1)
Quarter: 2018Q3

REPORT INFORMATION
  Report Type: Spontaneous
  Country: ES (occurrence: ES)
  Receive Date: 20180717
  Receipt Date: 20180717
  Transmission Date: 20181010
  Serious: Yes (Death, Hospitalization, Other)
  Sender: FDA-Public Use
  Company Number: ES-TEVA-2018-ES-925673

PATIENT

DRUGS (1)
  1. CARBOPLATIN CONCENTRATE FOR INFUSION 10MG/ML [Suspect]
     Active Substance: CARBOPLATIN

REACTIONS (2)
  - Pneumonia [Fatal]
  - Febrile neutropenia [Unknown]

NARRATIVE: CASE EVENT DATE: 201806
